FAERS Safety Report 19616572 (Version 1)
Quarter: 2021Q3

REPORT INFORMATION
  Report Type: Spontaneous
  Country: US (occurrence: US)
  Receive Date: 20210727
  Receipt Date: 20210727
  Transmission Date: 20211014
  Serious: No
  Sender: FDA-Public Use
  Company Number: US-ABBVIE-21K-163-3851065-00

PATIENT
  Sex: Female

DRUGS (1)
  1. SYNTHROID [Suspect]
     Active Substance: LEVOTHYROXINE SODIUM
     Indication: PRODUCT USED FOR UNKNOWN INDICATION
     Dosage: WAS SYNTHROID FOR 50 YEARS
     Route: 048

REACTIONS (4)
  - Overweight [Unknown]
  - Fatigue [Unknown]
  - Illness [Unknown]
  - Feeling abnormal [Unknown]
